FAERS Safety Report 8076765-7 (Version None)
Quarter: 2012Q1

REPORT INFORMATION
  Report Type: 
  Country: None (occurrence: None)
  Receive Date: 20120127
  Receipt Date: 20120110
  Transmission Date: 20120608
  Serious: Yes (Hospitalization)
  Sender: FDA-Public Use
  Company Number: PHHO2009TW13833

PATIENT
  Sex: Male
  Weight: 65 kg

DRUGS (5)
  1. FLUOROURACIL [Suspect]
     Dosage: 1050 MG, TID
     Route: 042
     Dates: start: 20091029
  2. FLUOROURACIL [Suspect]
     Indication: CHEMOTHERAPY
     Dosage: 700 MG, UNK
     Route: 042
     Dates: start: 20091029, end: 20091030
  3. AFINITOR [Suspect]
     Indication: METASTATIC RENAL CELL CARCINOMA
     Dosage: 10 MG, QD
     Route: 048
     Dates: start: 20090406, end: 20091023
  4. AVASTIN [Suspect]
     Dosage: 640 MG, BI-WEEKLY
     Route: 042
     Dates: start: 20091028, end: 20091028
  5. AVASTIN [Suspect]
     Indication: METASTATIC RENAL CELL CARCINOMA
     Dosage: 640 MG, BI-WEEKLY
     Route: 042
     Dates: start: 20090406, end: 20091019

REACTIONS (4)
  - BRONCHITIS [None]
  - NEOPLASM MALIGNANT [None]
  - NEOPLASM PROGRESSION [None]
  - PYREXIA [None]
